FAERS Safety Report 9543167 (Version 1)
Quarter: 2013Q2

REPORT INFORMATION
  Report Type: Spontaneous
  Country: US (occurrence: None)
  Receive Date: 20130524
  Receipt Date: 20130524
  Transmission Date: 20140414
  Serious: Yes (Other)
  Sender: FDA-Public Use
  Company Number: PHEH2012US025627

PATIENT
  Age: 25 Year
  Sex: Female

DRUGS (4)
  1. GILENYA (FINGOLIMOD) CAPSULE, 0.5MG [Suspect]
     Indication: MULTIPLE SCLEROSIS
     Route: 048
     Dates: start: 20120615
  2. CARBAMAZEPINE [Concomitant]
  3. VIT D (ERGOCALCIFEROL) [Concomitant]
  4. HUMALOG (INSULIN LISPRO) [Concomitant]

REACTIONS (8)
  - Central nervous system lesion [None]
  - Optic neuritis [None]
  - Paraesthesia [None]
  - Hypoaesthesia [None]
  - Asthenia [None]
  - Vertigo [None]
  - Influenza [None]
  - Multiple sclerosis relapse [None]
